FAERS Safety Report 9478307 (Version 1)
Quarter: 2013Q3

REPORT INFORMATION
  Report Type: Spontaneous
  Country: AT (occurrence: None)
  Receive Date: 20130822
  Receipt Date: 20130822
  Transmission Date: 20140515
  Serious: Yes (Other)
  Sender: FDA-Public Use
  Company Number: SYM-2013-08604

PATIENT
  Age: 51 Year
  Sex: Female

DRUGS (2)
  1. WELLBUTRIN [Suspect]
     Indication: DEPRESSION
     Route: 048
     Dates: start: 20130115, end: 20130415
  2. CYMBALTA [Suspect]
     Indication: DEPRESSION
     Dosage: 2 IN 1 D
     Dates: start: 20130115, end: 20130415

REACTIONS (5)
  - Hypertensive crisis [None]
  - Hyperhidrosis [None]
  - Dyspnoea [None]
  - Dizziness [None]
  - Fatigue [None]
